FAERS Safety Report 8495318-X (Version None)
Quarter: 2012Q3

REPORT INFORMATION
  Report Type: 
  Country: None (occurrence: None)
  Receive Date: 20120709
  Receipt Date: 20120703
  Transmission Date: 20120928
  Serious: Yes (Other)
  Sender: FDA-Public Use
  Company Number: IT-PFIZER INC-2012159910

PATIENT
  Age: 63 Year
  Sex: Female

DRUGS (2)
  1. XANAX [Suspect]
     Indication: ANXIETY
     Dosage: 3.75 MG DAILY
     Route: 048
     Dates: start: 20120630
  2. COUMADIN [Suspect]
     Indication: CARDIOMEGALY
     Dosage: 18.75 MG, WEEKLY
     Route: 048
     Dates: start: 19930209, end: 20120702

REACTIONS (1)
  - INTERNATIONAL NORMALISED RATIO INCREASED [None]
